FAERS Safety Report 8600885-9 (Version None)
Quarter: 2012Q3

REPORT INFORMATION
  Report Type: 
  Country: None (occurrence: None)
  Receive Date: 20120817
  Receipt Date: 20120809
  Transmission Date: 20120928
  Serious: Yes (Hospitalization)
  Sender: FDA-Public Use
  Company Number: US-BAYER-2012-035988

PATIENT
  Age: 21 Year
  Sex: Female
  Weight: 79.365 kg

DRUGS (3)
  1. YAZ [Suspect]
     Indication: CONTRACEPTION
     Dosage: UNK
     Dates: start: 20080813
  2. YAZ [Suspect]
     Dosage: UNK
     Dates: start: 20090514
  3. YAZ [Suspect]
     Dosage: UNK
     Dates: start: 20081217

REACTIONS (8)
  - INJURY [None]
  - CHOLECYSTITIS ACUTE [None]
  - VOMITING [None]
  - CHOLELITHIASIS [None]
  - NAUSEA [None]
  - GALLBLADDER DISORDER [None]
  - ABDOMINAL PAIN UPPER [None]
  - PAIN [None]
